FAERS Safety Report 7379627-3 (Version None)
Quarter: 2011Q1

REPORT INFORMATION
  Report Type: 
  Country: None (occurrence: None)
  Receive Date: 20110318
  Receipt Date: 20110223
  Transmission Date: 20110831
  Serious: Yes (Death, Life-Threatening)
  Sender: FDA-Public Use
  Company Number: 2010-4206

PATIENT
  Age: 2 Year
  Sex: Female
  Weight: 10 kg

DRUGS (4)
  1. RIOMET (METFORMIN) [Concomitant]
  2. INSULIN (INSULIN) [Concomitant]
  3. INCRELEX [Suspect]
     Indication: AUTOSOMAL CHROMOSOME ANOMALY
     Dosage: 1200 UG/KG (1200 UG/KG,CONTINUOUS VIA PUMP),SUBCUTANEOUS ; 80 UG/KG (40 UG/KG,2 IN 1 D),SUBCUTANEOUS
     Route: 058
     Dates: start: 20100412, end: 20100916
  4. INCRELEX [Suspect]
     Indication: AUTOSOMAL CHROMOSOME ANOMALY
     Dosage: 1200 UG/KG (1200 UG/KG,CONTINUOUS VIA PUMP),SUBCUTANEOUS ; 80 UG/KG (40 UG/KG,2 IN 1 D),SUBCUTANEOUS
     Route: 058
     Dates: start: 20090427, end: 20100411

REACTIONS (6)
  - OVARIAN ADENOMA [None]
  - HYPERGLYCAEMIA [None]
  - HYPOGLYCAEMIA [None]
  - ABDOMINAL DISTENSION [None]
  - ACUTE RESPIRATORY DISTRESS SYNDROME [None]
  - GRANULAR CELL TUMOUR [None]
